FAERS Safety Report 25219126 (Version 1)
Quarter: 2025Q2

REPORT INFORMATION
  Report Type: Report from Study
  Country: CA (occurrence: CA)
  Receive Date: 20250421
  Receipt Date: 20250421
  Transmission Date: 20250717
  Serious: Yes (Death)
  Sender: CARA THERAPEUTICS
  Company Number: CA-CARA THERAPEUTICS, INC.-2024-00542-CA

PATIENT

DRUGS (1)
  1. DIFELIKEFALIN [Suspect]
     Active Substance: DIFELIKEFALIN
     Indication: Product used for unknown indication
     Route: 042
     Dates: end: 20230514

REACTIONS (1)
  - Pneumonia aspiration [Fatal]
